FAERS Safety Report 6473769-2 (Version None)
Quarter: 2009Q4

REPORT INFORMATION
  Report Type: 
  Country: None (occurrence: None)
  Receive Date: 20091204
  Receipt Date: 20091128
  Transmission Date: 20100525
  Serious: Yes (Other)
  Sender: FDA-Public Use
  Company Number: FR-PFIZER INC-2009305384

PATIENT
  Age: 41 Year
  Sex: Female

DRUGS (1)
  1. VORICONAZOLE [Suspect]
     Indication: ASPERGILLOMA
     Dosage: UNK
     Dates: start: 20050101

REACTIONS (3)
  - HYPERKERATOSIS [None]
  - SKIN LESION [None]
  - SQUAMOUS CELL CARCINOMA [None]
